FAERS Safety Report 7863633-6 (Version None)
Quarter: 2011Q4

REPORT INFORMATION
  Report Type: 
  Country: None (occurrence: None)
  Receive Date: 20111027
  Receipt Date: 20101207
  Transmission Date: 20120403
  Serious: No
  Sender: FDA-Public Use
  Company Number: US-AMGEN-USASP2010002597

PATIENT
  Age: 61 Year
  Sex: Female

DRUGS (1)
  1. ENBREL [Suspect]
     Indication: PSORIATIC ARTHROPATHY
     Dosage: 50 MG, QWK
     Dates: start: 20101018, end: 20101201

REACTIONS (7)
  - SKIN FISSURES [None]
  - PAIN [None]
  - OSTEOARTHRITIS [None]
  - SKIN DISORDER [None]
  - LOCAL SWELLING [None]
  - ASTHENIA [None]
  - NO THERAPEUTIC RESPONSE [None]
